FAERS Safety Report 9265388 (Version 1)
Quarter: 2013Q2

REPORT INFORMATION
  Report Type: Report from Study
  Country: DE (occurrence: DE)
  Receive Date: 20130501
  Receipt Date: 20130501
  Transmission Date: 20140414
  Serious: Yes (Hospitalization)
  Sender: FDA-Public Use
  Company Number: DE-ROCHE-1215962

PATIENT
  Age: 58 Year
  Sex: Female
  Weight: 93.4 kg

DRUGS (21)
  1. RITUXIMAB [Suspect]
     Indication: MALIGNANT LYMPHOID NEOPLASM
     Dosage: LAST DOSE PRIOR TO SAE 21/MAR/2013
     Route: 042
     Dates: start: 20130321, end: 20130404
  2. PREDNISONE [Suspect]
     Indication: MALIGNANT LYMPHOID NEOPLASM
     Dosage: LAST DOSE PRIOR TO SAE 26/MAR/2013
     Route: 048
     Dates: start: 20130322, end: 20130405
  3. PREDNISONE [Suspect]
     Route: 048
     Dates: start: 20130408
  4. ETOPOSIDE [Suspect]
     Indication: MALIGNANT LYMPHOID NEOPLASM
     Dosage: LAST DOSE PRIOR TO SAE 24/MAR/2013
     Route: 042
     Dates: start: 20130322, end: 20130405
  5. ETOPOSIDE [Suspect]
     Route: 042
     Dates: start: 20130408
  6. VINCRISTINE [Suspect]
     Indication: MALIGNANT LYMPHOID NEOPLASM
     Dosage: LAST DOSE PRIOR TO SAE 22/MAR/2013
     Route: 042
     Dates: start: 20130322, end: 20130405
  7. VINCRISTINE [Suspect]
     Route: 042
     Dates: start: 20130408
  8. ADRIAMYCIN [Suspect]
     Indication: MALIGNANT LYMPHOID NEOPLASM
     Dosage: LAST DOSE PRIOR TO SAE 22/MAR/2013
     Route: 065
     Dates: start: 20130322, end: 20130405
  9. ADRIAMYCIN [Suspect]
     Route: 065
     Dates: start: 20130408
  10. CYCLOPHOSPHAMIDE [Suspect]
     Indication: MALIGNANT LYMPHOID NEOPLASM
     Route: 042
     Dates: start: 20130322, end: 20130405
  11. CYCLOPHOSPHAMIDE [Suspect]
     Route: 042
     Dates: start: 20130408
  12. CONCOR [Concomitant]
     Route: 065
     Dates: start: 2012
  13. LISINOPRIL [Concomitant]
     Route: 065
  14. L-THYROXIN [Concomitant]
     Route: 065
  15. ALLOPURINOL [Concomitant]
     Route: 065
     Dates: start: 201302
  16. ACICLOVIR [Concomitant]
     Route: 065
     Dates: start: 201302
  17. STILNOX [Concomitant]
     Route: 065
     Dates: start: 20130402
  18. CLEXANE [Concomitant]
     Route: 065
     Dates: start: 20130403
  19. PANTOPRAZOLE [Concomitant]
     Route: 065
     Dates: start: 201302
  20. COTRIM FORTE [Concomitant]
     Route: 065
     Dates: start: 20130330, end: 20130331
  21. NEULASTA [Concomitant]
     Route: 065
     Dates: start: 20130325, end: 20130325

REACTIONS (1)
  - General physical health deterioration [Recovered/Resolved]
